FAERS Safety Report 20157483 (Version 1)
Quarter: 2021Q4

REPORT INFORMATION
  Report Type: Spontaneous
  Country: DE (occurrence: DE)
  Receive Date: 20211207
  Receipt Date: 20211207
  Transmission Date: 20220303
  Serious: Yes (Hospitalization, Other)
  Sender: FDA-Public Use
  Company Number: DE-GLAXOSMITHKLINE-DECH2021GSK087708

PATIENT
  Age: 16 Year
  Sex: Female
  Weight: 112 kg

DRUGS (1)
  1. IBUPROFEN [Suspect]
     Active Substance: IBUPROFEN
     Indication: Dysmenorrhoea
     Dosage: 12-14 TABLETS(46 MG/KG/D)
     Route: 065

REACTIONS (6)
  - Acute kidney injury [Recovered/Resolved]
  - Nephropathy toxic [Recovered/Resolved]
  - Flank pain [Recovered/Resolved]
  - Vomiting [Recovered/Resolved]
  - Costovertebral angle tenderness [Recovered/Resolved]
  - Overdose [Unknown]
